FAERS Safety Report 12546481 (Version 1)
Quarter: 2016Q3

REPORT INFORMATION
  Report Type: Report from Study
  Country: BR (occurrence: BR)
  Receive Date: 20160711
  Receipt Date: 20160711
  Transmission Date: 20161109
  Serious: Yes (Hospitalization, Disabling)
  Sender: FDA-Public Use
  Company Number: BR-ABBVIE-16K-020-1667312-00

PATIENT
  Sex: Female

DRUGS (5)
  1. NEOZINE [Concomitant]
     Active Substance: LEVOMEPROMAZINE
     Indication: SLEEP DISORDER THERAPY
     Route: 048
     Dates: start: 201603
  2. CYCLOBENZAPRINE [Concomitant]
     Active Substance: CYCLOBENZAPRINE
     Indication: PAIN
     Route: 048
     Dates: start: 2015
  3. MORPHINE [Suspect]
     Active Substance: MORPHINE
     Indication: PRODUCT USED FOR UNKNOWN INDICATION
     Route: 065
  4. HUMIRA [Suspect]
     Active Substance: ADALIMUMAB
     Indication: ANKYLOSING SPONDYLITIS
     Route: 058
     Dates: start: 20160301
  5. DIAZEPAM. [Concomitant]
     Active Substance: DIAZEPAM
     Indication: SEDATIVE THERAPY
     Route: 048

REACTIONS (21)
  - Drug effect decreased [Not Recovered/Not Resolved]
  - Blood cholesterol increased [Recovering/Resolving]
  - Peripheral swelling [Not Recovered/Not Resolved]
  - Back pain [Unknown]
  - Headache [Recovered/Resolved]
  - Sensitivity to weather change [Not Recovered/Not Resolved]
  - Rhinitis [Recovering/Resolving]
  - Injury [Unknown]
  - Mobility decreased [Unknown]
  - Arthralgia [Unknown]
  - Rhinitis [Unknown]
  - Pain [Not Recovered/Not Resolved]
  - Dyspnoea [Unknown]
  - Musculoskeletal pain [Unknown]
  - Spleen scan abnormal [Unknown]
  - Abdominal pain upper [Unknown]
  - Protein total increased [Not Recovered/Not Resolved]
  - Musculoskeletal stiffness [Unknown]
  - Nasal pruritus [Recovered/Resolved]
  - Pain in extremity [Unknown]
  - Muscle spasms [Unknown]

NARRATIVE: CASE EVENT DATE: 2016
